FAERS Safety Report 10159652 (Version 1)
Quarter: 2014Q2

REPORT INFORMATION
  Report Type: Spontaneous
  Country: US (occurrence: US)
  Receive Date: 20140508
  Receipt Date: 20140508
  Transmission Date: 20141212
  Serious: No
  Sender: FDA-Public Use
  Company Number: US-GLAXOSMITHKLINE-A1019331A

PATIENT
  Age: 53 Year
  Sex: Female

DRUGS (1)
  1. TYKERB [Suspect]
     Indication: PRODUCT USED FOR UNKNOWN INDICATION
     Dosage: 1250MG PER DAY
     Route: 048
     Dates: start: 20130315

REACTIONS (6)
  - Dysuria [Unknown]
  - Nausea [Unknown]
  - Vomiting [Unknown]
  - Cheilitis [Unknown]
  - Pigmentation disorder [Unknown]
  - Peripheral swelling [Unknown]
